FAERS Safety Report 6421643-X (Version None)
Quarter: 2009Q4

REPORT INFORMATION
  Report Type: 
  Country: None (occurrence: None)
  Receive Date: 20091029
  Receipt Date: 20091029
  Transmission Date: 20100525
  Serious: Yes (Life-Threatening, Hospitalization)
  Sender: FDA-Public Use
  Company Number: None

PATIENT
  Sex: Female
  Weight: 109 kg

DRUGS (7)
  1. AZITHROMYCIN [Suspect]
     Dosage: 250 MG QDAYX5
     Dates: start: 20090924, end: 20090929
  2. LEVOTHYROXINE SODIUM [Concomitant]
  3. ALBUTEROL [Concomitant]
  4. BISAPROLOL-HCTZ [Concomitant]
  5. ASPIRIN [Concomitant]
  6. TYLENOL W/ CODEINE NO. 3 [Concomitant]
  7. GLYBURIDE XL [Concomitant]

REACTIONS (1)
  - INAPPROPRIATE ANTIDIURETIC HORMONE SECRETION [None]
